FAERS Safety Report 24837224 (Version 1)
Quarter: 2025Q1

REPORT INFORMATION
  Report Type: Spontaneous
  Country: US (occurrence: US)
  Receive Date: 20250113
  Receipt Date: 20250113
  Transmission Date: 20250409
  Serious: No
  Sender: Haleon PLC
  Company Number: US-HALEON-2221794

PATIENT

DRUGS (1)
  1. THERAFLU SEVERE COLD RELIEF NIGHTTIME [Suspect]
     Active Substance: ACETAMINOPHEN\DIPHENHYDRAMINE HYDROCHLORIDE\PHENYLEPHRINE HYDROCHLORIDE
     Indication: Cough

REACTIONS (2)
  - Drug ineffective [Unknown]
  - Product use complaint [Unknown]
